FAERS Safety Report 8413426 (Version 3)
Quarter: 2012Q4

REPORT INFORMATION
  Report Type: Report from Study
  Country: US (occurrence: US)
  Receive Date: 20120217
  Receipt Date: 20120924
  Transmission Date: 20130627
  Serious: Yes (Other)
  Sender: FDA-Public Use
  Company Number: US-ABBOTT-12P-163-0903312-00

PATIENT
  Age: 18 None
  Sex: Female
  Weight: 58.4 kg

DRUGS (11)
  1. HUMIRA [Suspect]
     Indication: CROHN^S DISEASE
     Dosage: 160 mg loading dose
     Dates: start: 201107, end: 201107
  2. HUMIRA [Suspect]
     Dosage: 80 mg loading dose
     Dates: start: 201107, end: 201107
  3. HUMIRA [Suspect]
  4. HUMIRA [Suspect]
  5. TYLENOL [Concomitant]
     Indication: PAIN
     Dosage: Taken as needed for quite some time
     Route: 048
  6. CALCIUM [Concomitant]
     Indication: MINERAL SUPPLEMENTATION
  7. MULTIVITAMIN [Concomitant]
     Indication: VITAMIN SUPPLEMENTATION
  8. VITAMIN D [Concomitant]
     Indication: VITAMIN SUPPLEMENTATION
  9. INFLIXIMAB [Concomitant]
     Indication: POSTOPERATIVE CARE
  10. ORAL CONTRACEPTIVE NOS [Concomitant]
     Indication: PRODUCT USED FOR UNKNOWN INDICATION
  11. IRON [Concomitant]
     Indication: PRODUCT USED FOR UNKNOWN INDICATION
     Dosage: 2 a day

REACTIONS (47)
  - Intestinal stenosis [Unknown]
  - Intestinal obstruction [Unknown]
  - Abdominal pain lower [Unknown]
  - Vomiting [Unknown]
  - Nasopharyngitis [Not Recovered/Not Resolved]
  - Rhinorrhoea [Not Recovered/Not Resolved]
  - Cough [Not Recovered/Not Resolved]
  - Pyrexia [Not Recovered/Not Resolved]
  - Cold sweat [Not Recovered/Not Resolved]
  - Oropharyngeal pain [Not Recovered/Not Resolved]
  - Respiratory tract congestion [Not Recovered/Not Resolved]
  - Gingival bleeding [Not Recovered/Not Resolved]
  - Hypoaesthesia oral [Not Recovered/Not Resolved]
  - Skin discolouration [Not Recovered/Not Resolved]
  - Oedema peripheral [Not Recovered/Not Resolved]
  - Incision site pain [Not Recovered/Not Resolved]
  - Sensation of pressure [Not Recovered/Not Resolved]
  - Chest pain [Not Recovered/Not Resolved]
  - Pollakiuria [Not Recovered/Not Resolved]
  - Hypertonic bladder [Not Recovered/Not Resolved]
  - Pallor [Not Recovered/Not Resolved]
  - Blood iron decreased [Not Recovered/Not Resolved]
  - Lymphadenopathy [Not Recovered/Not Resolved]
  - Fatigue [Not Recovered/Not Resolved]
  - Constipation [Unknown]
  - Abdominal distension [Unknown]
  - Abnormal weight gain [Unknown]
  - Post procedural haemorrhage [Unknown]
  - Haemoglobin decreased [Recovering/Resolving]
  - Iron deficiency [Recovering/Resolving]
  - Depression [Unknown]
  - Mental disorder [Unknown]
  - Feeling abnormal [Unknown]
  - Ileocolectomy [Unknown]
  - Swelling [Unknown]
  - Feeling abnormal [Unknown]
  - Blood glucose decreased [Unknown]
  - Malaise [Unknown]
  - Fatigue [Unknown]
  - Fatigue [Unknown]
  - Pallor [Unknown]
  - Feeling abnormal [Unknown]
  - Malaise [Unknown]
  - Abdominal pain [Unknown]
  - Constipation [Unknown]
  - Vision blurred [Unknown]
  - Vision blurred [Unknown]
